FAERS Safety Report 4928309-3 (Version None)
Quarter: 2006Q1

REPORT INFORMATION
  Report Type: 
  Country: None (occurrence: None)
  Receive Date: 20060223
  Receipt Date: 20060202
  Transmission Date: 20060701
  Serious: Yes (Other)
  Sender: FDA-Public Use
  Company Number: US200602000549

PATIENT
  Age: 72 Year
  Sex: Male
  Weight: 95.2 kg

DRUGS (3)
  1. HUMULIN 70/30 [Suspect]
     Indication: DIABETES MELLITUS
     Dosage: SEE IMAGE
  2. HUMULIN REGULAR (HUMAN INSULIN [Suspect]
     Indication: DIABETES MELLITUS
  3. INSULIN, ANIMAL (INSULIN, ANIMAL) [Suspect]
     Indication: DIABETES MELLITUS
     Dates: start: 19720101

REACTIONS (8)
  - BLOOD GLUCOSE DECREASED [None]
  - BLOOD GLUCOSE INCREASED [None]
  - CONFUSIONAL STATE [None]
  - DRUG DOSE OMISSION [None]
  - NEUROPATHIC ARTHROPATHY [None]
  - NEUROPATHY PERIPHERAL [None]
  - PHARMACEUTICAL PRODUCT COMPLAINT [None]
  - RETINOPATHY HAEMORRHAGIC [None]
